FAERS Safety Report 6810604-4 (Version None)
Quarter: 2010Q2

REPORT INFORMATION
  Report Type: 
  Country: None (occurrence: None)
  Receive Date: 20100630
  Receipt Date: 20100616
  Transmission Date: 20101027
  Serious: Yes (Hospitalization)
  Sender: FDA-Public Use
  Company Number: CA-MEDIMMUNE-MEDI-0011358

PATIENT
  Sex: Female
  Weight: 3.8 kg

DRUGS (2)
  1. SYNAGIS [Suspect]
     Route: 030
     Dates: start: 20091224, end: 20091224
  2. SYNAGIS [Suspect]
     Route: 030
     Dates: start: 20100114, end: 20100114

REACTIONS (10)
  - COUGH [None]
  - CRYING [None]
  - CYANOSIS [None]
  - DEHYDRATION [None]
  - DIARRHOEA [None]
  - HYPOPHAGIA [None]
  - IRRITABILITY [None]
  - NASAL CONGESTION [None]
  - TACHYPNOEA [None]
  - VOMITING [None]
